FAERS Safety Report 6640120-4 (Version None)
Quarter: 2010Q1

REPORT INFORMATION
  Report Type: 
  Country: None (occurrence: None)
  Receive Date: 20100315
  Receipt Date: 20100301
  Transmission Date: 20100710
  Serious: Yes (Other)
  Sender: FDA-Public Use
  Company Number: OMPQ-NO-1003L-0152

PATIENT
  Age: 76 Year
  Sex: Male

DRUGS (1)
  1. OMNIPAQUE 350 [Suspect]
     Indication: DRUG USE FOR UNKNOWN INDICATION
     Dosage: SINGLE DOSE, I.V.
     Route: 042
     Dates: start: 20081101, end: 20081101

REACTIONS (1)
  - ACUTE GENERALISED EXANTHEMATOUS PUSTULOSIS [None]
